FAERS Safety Report 12866310 (Version 2)
Quarter: 2016Q4

REPORT INFORMATION
  Report Type: Spontaneous
  Country: US (occurrence: US)
  Receive Date: 20161020
  Receipt Date: 20161202
  Transmission Date: 20170207
  Serious: No
  Sender: FDA-Public Use
  Company Number: US-JNJFOC-20160915466

PATIENT
  Sex: Female
  Weight: 81.65 kg

DRUGS (2)
  1. KERATIN [Concomitant]
     Active Substance: KERATIN
     Indication: HAIR GROWTH ABNORMAL
     Route: 065
  2. KETOCONAZOLE. [Suspect]
     Active Substance: KETOCONAZOLE
     Indication: SKIN DISORDER
     Route: 061
     Dates: start: 201601

REACTIONS (2)
  - Dandruff [Unknown]
  - Inappropriate schedule of drug administration [Unknown]
